FAERS Safety Report 4376010-X (Version None)
Quarter: 2004Q2

REPORT INFORMATION
  Report Type: 
  Country: None (occurrence: None)
  Receive Date: 20040609
  Receipt Date: 20040609
  Transmission Date: 20050107
  Serious: Yes (Hospitalization)
  Sender: FDA-Public Use
  Company Number: None

PATIENT
  Age: 62 Year
  Sex: Male

DRUGS (11)
  1. DIGOXIN [Suspect]
     Indication: ATRIAL FIBRILLATION
     Dosage: 0.125 MG PO QD
     Route: 048
  2. WARFARIN SODIUM [Concomitant]
  3. POTASSIUM CHLORIDE [Concomitant]
  4. FUROSEMIDE [Concomitant]
  5. NIACIN [Concomitant]
  6. METOPROLOL TARTRATE [Concomitant]
  7. ENALAPRIL [Concomitant]
  8. SIMVASTATIN [Concomitant]
  9. LANSOPRAZOLE [Concomitant]
  10. OXYCODONE [Concomitant]
  11. APAP TAB [Concomitant]

REACTIONS (10)
  - ASTHENIA [None]
  - BLOOD SODIUM INCREASED [None]
  - DECREASED APPETITE [None]
  - DRUG TOXICITY [None]
  - FLUID INTAKE REDUCED [None]
  - HEART RATE DECREASED [None]
  - HYPOTENSION [None]
  - RENAL FAILURE [None]
  - SEPTIC SHOCK [None]
  - WHITE BLOOD CELL COUNT INCREASED [None]
